FAERS Safety Report 7842409 (Version 3)
Quarter: 2013Q1

REPORT INFORMATION
  Report Type: Spontaneous
  Country: US (occurrence: US)
  Receive Date: 20110304
  Receipt Date: 20130108
  Transmission Date: 20140127
  Serious: Yes (Life-Threatening)
  Sender: FDA-Public Use
  Company Number: PHHY2011US16583

PATIENT
  Age: 75 Year
  Sex: Female

DRUGS (15)
  1. RECLAST [Suspect]
     Indication: OSTEOPOROSIS
     Dosage: 5 MG, YEARLY
     Route: 042
     Dates: start: 20101202
  2. RECLAST [Suspect]
     Dosage: 5 MG/100 ML
     Route: 042
     Dates: start: 20121022
  3. CALCIUM [Concomitant]
     Dosage: UNK
  4. VITAMIN D [Concomitant]
     Dosage: TWICE DAILY
  5. ASPIRIN [Concomitant]
     Dosage: UNK
     Route: 048
  6. FISH OIL [Concomitant]
     Dosage: UNK
     Route: 048
  7. PROTONIX [Concomitant]
     Dosage: UNK
     Route: 048
  8. MUCINEX [Concomitant]
     Dosage: UNK
     Route: 048
  9. STOOL SOFTENER [Concomitant]
  10. METAMUCIL [Concomitant]
  11. GLUCOSAMINE [Concomitant]
  12. BLUE-EMU [Concomitant]
  13. MAGNESIUM [Concomitant]
  14. ALBUTEROL [Concomitant]
  15. DOXYCYCLINE [Concomitant]

REACTIONS (24)
  - Vitamin D increased [Unknown]
  - Bronchitis [Unknown]
  - Blood parathyroid hormone increased [Unknown]
  - Chest discomfort [Unknown]
  - Breast pain [Unknown]
  - Gait disturbance [Unknown]
  - Groin pain [Unknown]
  - Insomnia [Unknown]
  - Pain in extremity [Unknown]
  - Balance disorder [Unknown]
  - Influenza like illness [Unknown]
  - Chills [Unknown]
  - Fatigue [Unknown]
  - Pyrexia [Unknown]
  - Nausea [Unknown]
  - Myalgia [Unknown]
  - Vomiting [Unknown]
  - Diarrhoea [Unknown]
  - Dizziness [Unknown]
  - Arthralgia [Unknown]
  - Bone pain [Unknown]
  - Headache [Unknown]
  - Paraesthesia [Unknown]
  - Abdominal pain [Unknown]
